FAERS Safety Report 23731295 (Version 4)
Quarter: 2024Q2

REPORT INFORMATION
  Report Type: Spontaneous
  Country: GB (occurrence: GB)
  Receive Date: 20240411
  Receipt Date: 20240516
  Transmission Date: 20240716
  Serious: Yes (Death, Other)
  Sender: FDA-Public Use
  Company Number: GB-GENMAB-2024-01174

PATIENT
  Age: 57 Year
  Sex: Male
  Weight: 69 kg

DRUGS (2)
  1. EPCORITAMAB [Suspect]
     Active Substance: EPCORITAMAB
     Indication: Product used for unknown indication
     Dosage: END DATE: MAR 2024
     Route: 058
     Dates: start: 20240305, end: 202403
  2. EPCORITAMAB [Suspect]
     Active Substance: EPCORITAMAB
     Dosage: END DATE: 2024
     Route: 058
     Dates: start: 20240312, end: 2024

REACTIONS (2)
  - Death [Fatal]
  - Disease progression [Unknown]

NARRATIVE: CASE EVENT DATE: 20240101
